FAERS Safety Report 8866271 (Version 1)
Quarter: 2012Q4

REPORT INFORMATION
  Report Type: 
  Country: US (occurrence: US)
  Receive Date: 20121025
  Receipt Date: 20121025
  Transmission Date: 20130627
  Serious: Yes (Death)
  Sender: FDA-Public Use
  Company Number: US-ROCHE-1148872

PATIENT
  Age: 66 Year
  Sex: Male
  Weight: 57.66 kg

DRUGS (4)
  1. AVASTIN [Suspect]
     Indication: OVARIAN CANCER
     Route: 042
     Dates: start: 20111031, end: 20120103
  2. CARAFATE [Concomitant]
     Route: 048
  3. LORAZEPAM [Concomitant]
     Route: 048
  4. PANTOPRAZOLE [Concomitant]
     Route: 048

REACTIONS (1)
  - Intestinal obstruction [Fatal]
